FAERS Safety Report 14789610 (Version 1)
Quarter: 2018Q2

REPORT INFORMATION
  Report Type: Spontaneous
  Country: US (occurrence: US)
  Receive Date: 20180423
  Receipt Date: 20180423
  Transmission Date: 20180711
  Serious: No
  Sender: FDA-Public Use
  Company Number: US-TEVA-787762USA

PATIENT
  Sex: Female

DRUGS (2)
  1. ZOLPIDEM [Suspect]
     Active Substance: ZOLPIDEM\ZOLPIDEM TARTRATE
     Route: 065
     Dates: start: 20170701, end: 20170704
  2. LORAZEPAM. [Concomitant]
     Active Substance: LORAZEPAM

REACTIONS (9)
  - Change of bowel habit [Unknown]
  - Headache [Recovered/Resolved]
  - Headache [Unknown]
  - Abdominal pain upper [Recovered/Resolved]
  - Drug effect increased [Unknown]
  - Nausea [Unknown]
  - Wrong technique in product usage process [Unknown]
  - Abdominal discomfort [Unknown]
  - Diarrhoea [Recovered/Resolved]

NARRATIVE: CASE EVENT DATE: 20170701
